FAERS Safety Report 5221833-8 (Version None)
Quarter: 2007Q1

REPORT INFORMATION
  Report Type: 
  Country: None (occurrence: None)
  Receive Date: 20070129
  Receipt Date: 20070125
  Transmission Date: 20070707
  Serious: Yes (Death)
  Sender: FDA-Public Use
  Company Number: JP-ELI_LILLY_AND_COMPANY-JP200612004164

PATIENT
  Age: 52 Year
  Sex: Male
  Weight: 70 kg

DRUGS (11)
  1. ZYPREXA [Suspect]
     Indication: SCHIZOPHRENIA
     Dosage: 20 MG, DAILY (1/D), AFTER SUPPER
     Route: 048
     Dates: start: 20061218, end: 20061218
  2. RISPERDAL [Concomitant]
     Indication: SCHIZOPHRENIA
     Dosage: 2 MG, 3/D, AFTER MEAL
     Route: 048
     Dates: start: 20061110, end: 20061218
  3. LEVOTOMIN [Concomitant]
     Indication: SCHIZOPHRENIA
     Dosage: 50 MG, 3/D, AFTER MEAL
     Route: 048
     Dates: start: 20061110, end: 20061218
  4. LEVOTOMIN [Concomitant]
     Dosage: 100 MG, DAILY (1/D), BEFORE BEDTIME
     Route: 048
     Dates: start: 20061110, end: 20061118
  5. LEXOTAN [Concomitant]
     Indication: SCHIZOPHRENIA
     Dosage: 4 MG, 3/D, AFTER MEAL
     Route: 048
     Dates: start: 20061110, end: 20061218
  6. LEXOTAN [Concomitant]
     Dosage: 5 MG, 3/D, AFTER MEAL
     Route: 048
     Dates: start: 20061218, end: 20061218
  7. LINTON [Concomitant]
     Indication: SCHIZOPHRENIA
     Dosage: 1 MG, 3/D, AFTER MEAL
     Route: 048
     Dates: start: 20061121, end: 20061218
  8. AKINETON [Concomitant]
     Indication: PROPHYLAXIS
     Dosage: 1 MG, 3/D, AFTER MEAL
     Route: 048
     Dates: start: 20061204, end: 20061218
  9. NITRAZEPAM [Concomitant]
     Indication: SCHIZOPHRENIA
     Dosage: 20 MG, DAILY (1/D), BEFORE BEDTIME
     Route: 048
     Dates: start: 20061110, end: 20061218
  10. PROPITAN [Concomitant]
     Indication: SCHIZOPHRENIA
     Dosage: 50 MG, 3/D, AFTER MEAL
     Route: 048
     Dates: start: 20061218, end: 20061218
  11. PROMETHAZINE HCL [Concomitant]
     Indication: PROPHYLAXIS
     Dosage: 25 MG, DAILY (1/D), BEFORE BEDTIME
     Route: 048
     Dates: start: 20061213, end: 20061218

REACTIONS (2)
  - CARDIO-RESPIRATORY ARREST [None]
  - HYPOXIC ENCEPHALOPATHY [None]
